FAERS Safety Report 17723073 (Version 1)
Quarter: 2020Q2

REPORT INFORMATION
  Report Type: Spontaneous
  Country: US (occurrence: US)
  Receive Date: 20200429
  Receipt Date: 20200429
  Transmission Date: 20200714
  Serious: Yes (Hospitalization)
  Sender: FDA-Public Use
  Company Number: US-009507513-1807USA001534

PATIENT
  Age: 61 Year
  Sex: Male
  Weight: 66 kg

DRUGS (5)
  1. DECADRON [Suspect]
     Active Substance: DEXAMETHASONE
     Indication: BRAIN OEDEMA
     Dosage: 4 MG, QD
     Route: 048
     Dates: start: 20171012, end: 20171120
  2. LBH589 [Concomitant]
     Active Substance: PANOBINOSTAT
     Indication: COLORECTAL CANCER
     Dosage: 10 MG, TIW
     Route: 048
     Dates: start: 20170721, end: 20171013
  3. PDR001 [Concomitant]
     Active Substance: SPARTALIZUMAB
     Dosage: 400 MG, EVERY 4 WEEKS
     Route: 042
     Dates: start: 20171208
  4. LBH589 [Concomitant]
     Active Substance: PANOBINOSTAT
     Dosage: 10 MG, TIW
     Route: 048
     Dates: start: 20171208
  5. PDR001 [Concomitant]
     Active Substance: SPARTALIZUMAB
     Indication: COLORECTAL CANCER
     Dosage: 400 MG, EVERY 4 WEEKS
     Route: 042
     Dates: start: 20170721, end: 20171013

REACTIONS (1)
  - Hyperglycaemia [Recovering/Resolving]

NARRATIVE: CASE EVENT DATE: 20171120
